FAERS Safety Report 9707341 (Version 1)
Quarter: 2013Q4

REPORT INFORMATION
  Report Type: Spontaneous
  Country: IN (occurrence: IN)
  Receive Date: 20131125
  Receipt Date: 20131125
  Transmission Date: 20140711
  Serious: Yes (Other)
  Sender: FDA-Public Use
  Company Number: IN-MYLANLABS-2013S1025916

PATIENT
  Age: 30 Year
  Sex: Female

DRUGS (2)
  1. HYDROXYCHLOROQUINE [Suspect]
     Indication: SYSTEMIC LUPUS ERYTHEMATOSUS
     Dosage: CUMULATIVE DOSE 340G
     Route: 065
     Dates: start: 200901
  2. CALCIUM [Concomitant]
     Route: 065

REACTIONS (1)
  - Lipid metabolism disorder [Recovering/Resolving]
